FAERS Safety Report 4437045-1 (Version None)
Quarter: 2004Q3

REPORT INFORMATION
  Report Type: 
  Country: None (occurrence: None)
  Receive Date: 20040830
  Receipt Date: 20040804
  Transmission Date: 20050211
  Serious: Yes (Hospitalization, Other)
  Sender: FDA-Public Use
  Company Number: US-GLAXOSMITHKLINE-A0520976A

PATIENT
  Age: 71 Year
  Sex: Male

DRUGS (8)
  1. WELLBUTRIN [Suspect]
     Indication: DRUG USE FOR UNKNOWN INDICATION
     Dosage: 150MG PER DAY
     Route: 048
     Dates: start: 20040719, end: 20040728
  2. GLYBURIDE [Concomitant]
  3. SYNTHROID [Concomitant]
  4. ZYLOPRIM [Concomitant]
  5. AMBIEN [Concomitant]
  6. VICODIN [Concomitant]
  7. LASIX [Concomitant]
  8. GABITRIL [Concomitant]

REACTIONS (6)
  - CONFUSIONAL STATE [None]
  - INCONTINENCE [None]
  - RASH [None]
  - RESPIRATORY DISTRESS [None]
  - SWOLLEN TONGUE [None]
  - URINARY TRACT INFECTION [None]
